FAERS Safety Report 7906059-9 (Version None)
Quarter: 2011Q4

REPORT INFORMATION
  Report Type: 
  Country: None (occurrence: None)
  Receive Date: 20111110
  Receipt Date: 20111110
  Transmission Date: 20120403
  Serious: No
  Sender: FDA-Public Use
  Company Number: None

PATIENT
  Age: 60 Year
  Sex: Female
  Weight: 52.163 kg

DRUGS (1)
  1. ATELVIA [Suspect]
     Indication: OSTEOPOROSIS
     Dosage: 1 TABLET BY MOUTH
     Dates: start: 20111012, end: 20111108

REACTIONS (5)
  - INFLUENZA LIKE ILLNESS [None]
  - EYE PAIN [None]
  - HEADACHE [None]
  - ARTHRALGIA [None]
  - PYREXIA [None]
